FAERS Safety Report 5411887-8 (Version None)
Quarter: 2007Q3

REPORT INFORMATION
  Report Type: 
  Country: None (occurrence: None)
  Receive Date: 20070813
  Receipt Date: 20070801
  Transmission Date: 20080115
  Serious: Yes (Death)
  Sender: FDA-Public Use
  Company Number: GB-NOVOPROD-265225

PATIENT
  Sex: Male
  Weight: 62 kg

DRUGS (22)
  1. NOVOLOG MIX 70/30 [Suspect]
     Indication: INSULIN-REQUIRING TYPE II DIABETES MELLITUS
     Dosage: 36 IU, QD
     Route: 058
     Dates: start: 20060626, end: 20070703
  2. CO-PROXAMOL                        /00016701/ [Concomitant]
     Dosage: UNK, QD
     Route: 048
     Dates: start: 19970107
  3. FRUSEMIDE                          /00032601/ [Concomitant]
     Dosage: 40 MG, QD
     Route: 048
     Dates: start: 20061019
  4. AMITRIPTYLINE HCL [Concomitant]
     Dosage: 10 MG, QD
     Route: 048
     Dates: start: 20030625
  5. LISINOPRIL [Concomitant]
     Dosage: 10 MG, QD
     Route: 048
     Dates: start: 20060510
  6. EZETIMIBE [Concomitant]
     Dosage: 10 MG, QD
     Route: 048
     Dates: start: 20050525
  7. ATORVASTATIN CALCIUM [Concomitant]
     Dosage: 80 MG, QD
     Route: 048
     Dates: start: 20030625
  8. WARFARIN SODIUM [Concomitant]
     Route: 048
     Dates: start: 19970125, end: 20061218
  9. GTN-S [Concomitant]
     Route: 055
     Dates: start: 19941027
  10. GLICLAZIDE [Concomitant]
     Dosage: 320 MG, QD
     Route: 048
     Dates: start: 19970125
  11. METFORMIN HCL [Concomitant]
     Dosage: 1000 MG, QD
     Route: 048
     Dates: start: 20050525
  12. CODEINE PHOSPHATE AND ACETAMINOPHEN [Concomitant]
     Route: 048
     Dates: start: 20061213
  13. BISOPROLOL [Concomitant]
     Dosage: 2.5 MG, QD
     Route: 048
     Dates: start: 20061213
  14. BACTROBAN [Concomitant]
     Route: 061
     Dates: start: 20061205
  15. DIGOXIN [Concomitant]
     Dosage: .25 MG, QD
     Route: 048
     Dates: start: 20061215
  16. VIAGRA [Concomitant]
     Dosage: 50 MG, QD
     Route: 048
     Dates: start: 20030625
  17. ASPIRINE                           /00002701/ [Concomitant]
     Dosage: 75 MG, QD
     Route: 048
     Dates: start: 20061215
  18. ISMN [Concomitant]
     Dosage: 30 MG, QD
     Route: 048
     Dates: start: 20061121
  19. DIHYDROCODEINE BITARTRATE INJ [Concomitant]
     Dosage: 30 MG, QD
     Route: 048
     Dates: start: 20061121
  20. OMEPRAZOLE [Concomitant]
     Dosage: 20 MG, QD
     Route: 048
     Dates: start: 20061121
  21. AQUASEPT [Concomitant]
     Route: 061
     Dates: start: 20061205
  22. GAVISCON                           /00237601/ [Concomitant]
     Dosage: 40 ML, QD
     Route: 048
     Dates: start: 20061116

REACTIONS (1)
  - DEATH [None]
